FAERS Safety Report 19647671 (Version 1)
Quarter: 2021Q3

REPORT INFORMATION
  Report Type: Spontaneous
  Country: US (occurrence: US)
  Receive Date: 20210802
  Receipt Date: 20210802
  Transmission Date: 20211014
  Serious: Yes (Other)
  Sender: FDA-Public Use
  Company Number: NVSC2021US172843

PATIENT
  Sex: Male

DRUGS (1)
  1. TASIGNA [Suspect]
     Active Substance: NILOTINIB
     Indication: PRODUCT USED FOR UNKNOWN INDICATION
     Dosage: UNK
     Route: 065
     Dates: start: 200709, end: 200904

REACTIONS (8)
  - Pain [Unknown]
  - Arteriosclerosis coronary artery [Unknown]
  - Anxiety [Unknown]
  - Cerebral infarction [Unknown]
  - Coronary artery occlusion [Unknown]
  - Injury [Unknown]
  - Arteriosclerosis [Unknown]
  - Emotional distress [Unknown]
